FAERS Safety Report 6913923-6 (Version None)
Quarter: 2010Q3

REPORT INFORMATION
  Report Type: 
  Country: None (occurrence: None)
  Receive Date: 20100809
  Receipt Date: 20100802
  Transmission Date: 20110219
  Serious: Yes (Hospitalization, Other)
  Sender: FDA-Public Use
  Company Number: FR-ABBOTT-10P-056-0660413-00

PATIENT
  Age: 35 Year
  Sex: Female

DRUGS (4)
  1. AKINETON LP [Suspect]
     Indication: BIPOLAR DISORDER
  2. DEPAMIDE [Concomitant]
     Indication: BIPOLAR DISORDER
  3. XANAX [Concomitant]
     Indication: BIPOLAR DISORDER
  4. HALOPERIDOL DECANOATE [Concomitant]
     Indication: PRODUCT USED FOR UNKNOWN INDICATION

REACTIONS (5)
  - COMA [None]
  - DELIRIUM [None]
  - HALLUCINATION [None]
  - OVERDOSE [None]
  - RESTLESSNESS [None]
